FAERS Safety Report 15287093 (Version 1)
Quarter: 2018Q3

REPORT INFORMATION
  Report Type: Spontaneous
  Country: FR (occurrence: FR)
  Receive Date: 20180817
  Receipt Date: 20180817
  Transmission Date: 20181010
  Serious: Yes (Other)
  Sender: FDA-Public Use
  Company Number: FR-TEVA-2018-FR-942152

PATIENT
  Age: 45 Year
  Sex: Female
  Weight: 93 kg

DRUGS (5)
  1. ATORVASTATINE [Concomitant]
     Active Substance: ATORVASTATIN
  2. ACIDE FOLIQUE [Concomitant]
     Active Substance: FOLIC ACID
  3. DILTIAZEM (CHLORHYDRATE DE) [Concomitant]
     Active Substance: DILTIAZEM HYDROCHLORIDE
  4. DERMOVAL [Concomitant]
  5. METHOTREXATE. [Suspect]
     Active Substance: METHOTREXATE
     Indication: PSORIASIS
     Dosage: 15 MG WEEKLY
     Route: 058
     Dates: start: 20110202, end: 201303

REACTIONS (1)
  - Respiratory tract infection [Recovered/Resolved]

NARRATIVE: CASE EVENT DATE: 201303
